FAERS Safety Report 8732712 (Version 2)
Quarter: 2012Q4

REPORT INFORMATION
  Report Type: Report from Study
  Country: FR (occurrence: FR)
  Receive Date: 20120820
  Receipt Date: 20121018
  Transmission Date: 20130627
  Serious: Yes (Other)
  Sender: FDA-Public Use
  Company Number: FR-CELGENEUS-056-21880-12080971

PATIENT
  Age: 63 Year
  Sex: Male

DRUGS (9)
  1. REVLIMID [Suspect]
     Indication: MULTIPLE MYELOMA
     Route: 048
     Dates: start: 20110701, end: 20120807
  2. BORTEZOMIB [Suspect]
     Indication: MULTIPLE MYELOMA
     Route: 065
     Dates: start: 20110701, end: 20120106
  3. DEXAMETHASONE [Suspect]
     Indication: MULTIPLE MYELOMA
     Route: 065
     Dates: start: 20110701, end: 20120107
  4. ZELITREX [Concomitant]
     Indication: INFECTION PROPHYLAXIS
     Dosage: 1 Gram
     Route: 048
     Dates: start: 20120629
  5. SPECIAFOLDINE [Concomitant]
     Indication: INFECTION PROPHYLAXIS
     Dosage: 10 Milligram
     Route: 048
     Dates: start: 20120629
  6. OMEPRAZOLE [Concomitant]
     Indication: PROPHYLAXIS
     Dosage: 20 Milligram
     Route: 048
     Dates: start: 20120629
  7. BACTRIM [Concomitant]
     Indication: INFECTION PROPHYLAXIS
     Route: 048
     Dates: start: 20120629
  8. ORACILLINE [Concomitant]
     Indication: INFECTION PROPHYLAXIS
     Dosage: 20
     Route: 048
     Dates: start: 20111007
  9. ASPEGIC [Concomitant]
     Indication: THROMBOEMBOLISM PROPHYLAXIS
     Dosage: 100 Milligram
     Route: 048
     Dates: start: 20120214

REACTIONS (1)
  - Superficial spreading melanoma stage unspecified [Recovered/Resolved]
